FAERS Safety Report 9024283 (Version 2)
Quarter: 2013Q1

REPORT INFORMATION
  Report Type: Spontaneous
  Country: CO (occurrence: CO)
  Receive Date: 20130121
  Receipt Date: 20130122
  Transmission Date: 20140127
  Serious: Yes (Death)
  Sender: FDA-Public Use
  Company Number: PHHY2013CO005161

PATIENT
  Age: 69 None
  Sex: Male

DRUGS (3)
  1. TASIGNA [Suspect]
     Indication: CHRONIC MYELOID LEUKAEMIA
     Dosage: 300 MG, UNK
     Route: 048
     Dates: start: 20120316, end: 20121123
  2. ACETAMINOPHEN [Concomitant]
  3. MYLANTA [Concomitant]

REACTIONS (4)
  - Respiratory arrest [Fatal]
  - Haemoglobin decreased [Fatal]
  - Kidney infection [Fatal]
  - Cerebral disorder [Fatal]
